FAERS Safety Report 4745714-9 (Version None)
Quarter: 2005Q3

REPORT INFORMATION
  Report Type: 
  Country: None (occurrence: None)
  Receive Date: 20050815
  Receipt Date: 20050815
  Transmission Date: 20060218
  Serious: Yes (Other)
  Sender: FDA-Public Use
  Company Number: None

PATIENT
  Age: 34 Year
  Sex: Male
  Weight: 100.5171 kg

DRUGS (3)
  1. DURAGESIC-25 [Suspect]
     Indication: ARTHROPATHY
     Dosage: 25 MCG Q 72 HR PATCH
     Dates: start: 20050622, end: 20050802
  2. DURAGESIC-25 [Suspect]
     Indication: BACK PAIN
     Dosage: 25 MCG Q 72 HR PATCH
     Dates: start: 20050622, end: 20050802
  3. DURAGESIC-25 [Suspect]
     Indication: FACET JOINT SYNDROME
     Dosage: 25 MCG Q 72 HR PATCH
     Dates: start: 20050622, end: 20050802

REACTIONS (4)
  - APPLICATION SITE DERMATITIS [None]
  - RASH ERYTHEMATOUS [None]
  - RASH MACULAR [None]
  - RASH PRURITIC [None]
